FAERS Safety Report 5906759-6 (Version None)
Quarter: 2008Q3

REPORT INFORMATION
  Report Type: 
  Country: None (occurrence: None)
  Receive Date: 20080930
  Receipt Date: 20080511
  Transmission Date: 20090109
  Serious: Yes (Death, Life-Threatening, Hospitalization, Other)
  Sender: FDA-Public Use
  Company Number: 2008PL000139

PATIENT
  Age: 20 Year
  Sex: Female
  Weight: 47 kg

DRUGS (1)
  1. AZATHIOPRINE [Suspect]
     Indication: PROTEINURIA
     Dosage: 50 MG;BID

REACTIONS (7)
  - ACINETOBACTER INFECTION [None]
  - BACTERIAL SEPSIS [None]
  - BONE MARROW FAILURE [None]
  - CAECITIS [None]
  - PETECHIAE [None]
  - PNEUMONIA [None]
  - SEPTIC SHOCK [None]
